FAERS Safety Report 7630194-6 (Version None)
Quarter: 2011Q3

REPORT INFORMATION
  Report Type: 
  Country: None (occurrence: None)
  Receive Date: 20110722
  Receipt Date: 20110713
  Transmission Date: 20111222
  Serious: Yes (Other)
  Sender: FDA-Public Use
  Company Number: CA-JNJFOC-20110706444

PATIENT
  Sex: Male
  Weight: 62 kg

DRUGS (5)
  1. CANNABIS [Concomitant]
  2. REMICADE [Suspect]
     Indication: CROHN'S DISEASE
     Route: 042
  3. PREDNISONE [Concomitant]
  4. CHOLESTYRAMINE [Concomitant]
  5. REMICADE [Suspect]
     Dosage: PATIENT'S 6TH INFUSION
     Route: 042
     Dates: start: 20110705

REACTIONS (1)
  - CLAVICLE FRACTURE [None]
